FAERS Safety Report 14763630 (Version 1)
Quarter: 2018Q2

REPORT INFORMATION
  Report Type: Spontaneous
  Country: US (occurrence: US)
  Receive Date: 20180410
  Receipt Date: 20180410
  Transmission Date: 20180711
  Serious: Yes (Hospitalization)
  Sender: FDA-Public Use
  Company Number: None

PATIENT
  Age: 40 Year
  Sex: Female

DRUGS (3)
  1. GILENYA [Suspect]
     Active Substance: FINGOLIMOD HYDROCHLORIDE
     Route: 048
     Dates: start: 20170524
  2. CLONIDINE. [Concomitant]
     Active Substance: CLONIDINE
  3. TRIAMT [Concomitant]

REACTIONS (1)
  - Vertigo [None]

NARRATIVE: CASE EVENT DATE: 20180406
